FAERS Safety Report 20170804 (Version 1)
Quarter: 2021Q4

REPORT INFORMATION
  Report Type: Spontaneous
  Country: US (occurrence: None)
  Receive Date: 20211210
  Receipt Date: 20211210
  Transmission Date: 20220303
  Serious: Yes (Hospitalization)
  Sender: FDA-Public Use
  Company Number: None

PATIENT
  Age: 70 Year
  Sex: Male
  Weight: 99 kg

DRUGS (1)
  1. LISINOPRIL [Suspect]
     Active Substance: LISINOPRIL
     Indication: Hypertension
     Dates: start: 20180503, end: 20200715

REACTIONS (4)
  - Angioedema [None]
  - Pruritus [None]
  - Bradycardia [None]
  - Blood pressure systolic increased [None]

NARRATIVE: CASE EVENT DATE: 20200715
